APPROVED DRUG PRODUCT: VENLAFAXINE HYDROCHLORIDE
Active Ingredient: VENLAFAXINE HYDROCHLORIDE
Strength: EQ 100MG BASE
Dosage Form/Route: TABLET;ORAL
Application: A090027 | Product #005
Applicant: PRINSTON PHARMACEUTICAL INC
Approved: Aug 4, 2010 | RLD: No | RS: No | Type: DISCN